FAERS Safety Report 10182102 (Version 3)
Quarter: 2014Q3

REPORT INFORMATION
  Report Type: Spontaneous
  Country: IT (occurrence: IT)
  Receive Date: 20140520
  Receipt Date: 20140801
  Transmission Date: 20150326
  Serious: Yes (Hospitalization)
  Sender: FDA-Public Use
  Company Number: IT-ROCHE-1403958

PATIENT
  Age: 89 Year
  Sex: Male

DRUGS (14)
  1. ROCEFIN [Suspect]
     Active Substance: CEFTRIAXONE SODIUM
     Indication: PRODUCT USED FOR UNKNOWN INDICATION
     Route: 030
     Dates: start: 20140507, end: 20140512
  2. ENTEROGERMINA (ITALY) [Concomitant]
  3. FOLINA [Concomitant]
     Active Substance: FOLIC ACID
  4. XATRAL [Concomitant]
     Active Substance: ALFUZOSIN
  5. TRITTICO [Concomitant]
     Active Substance: TRAZODONE HYDROCHLORIDE
  6. FERROUS SULFATE [Concomitant]
     Active Substance: FERROUS SULFATE\FERROUS SULFATE, DRIED
  7. ISOCEF [Suspect]
     Active Substance: CEFTIBUTEN
     Indication: PRODUCT USED FOR UNKNOWN INDICATION
     Route: 048
     Dates: start: 20140507, end: 20140512
  8. TRENTAL [Concomitant]
     Active Substance: PENTOXIFYLLINE
  9. LENDORMIN [Concomitant]
     Active Substance: BROTIZOLAM
  10. LASIX [Concomitant]
     Active Substance: FUROSEMIDE
  11. MEDROL [Concomitant]
     Active Substance: METHYLPREDNISOLONE
  12. TIKLID [Concomitant]
     Active Substance: TICLOPIDINE HYDROCHLORIDE
  13. NEXIUM [Concomitant]
     Active Substance: ESOMEPRAZOLE MAGNESIUM
  14. TAVANIC [Concomitant]
     Active Substance: LEVOFLOXACIN

REACTIONS (2)
  - Drug ineffective [Unknown]
  - Pneumonia [Recovering/Resolving]

NARRATIVE: CASE EVENT DATE: 20140512
